FAERS Safety Report 8442260-6 (Version None)
Quarter: 2012Q2

REPORT INFORMATION
  Report Type: 
  Country: None (occurrence: None)
  Receive Date: 20120615
  Receipt Date: 20120608
  Transmission Date: 20120825
  Serious: Yes (Disabling)
  Sender: FDA-Public Use
  Company Number: GB-ABBOTT-12P-167-0944253-00

PATIENT
  Age: 28 Year
  Sex: Female

DRUGS (1)
  1. HUMIRA [Suspect]
     Indication: PRODUCT USED FOR UNKNOWN INDICATION
     Route: 058
     Dates: start: 20110722

REACTIONS (7)
  - ABDOMINAL PAIN [None]
  - MALAISE [None]
  - APHAGIA [None]
  - FATIGUE [None]
  - INSOMNIA [None]
  - VOMITING [None]
  - DIARRHOEA [None]
